FAERS Safety Report 22240887 (Version 1)
Quarter: 2023Q2

REPORT INFORMATION
  Report Type: Spontaneous
  Country: US (occurrence: None)
  Receive Date: 20230420
  Receipt Date: 20230420
  Transmission Date: 20230722
  Serious: No
  Sender: FDA-Public Use
  Company Number: None

PATIENT
  Age: 78 Year
  Sex: Male
  Weight: 88.9 kg

DRUGS (25)
  1. ABIRATERONE ACETATE [Suspect]
     Active Substance: ABIRATERONE ACETATE
     Indication: Prostate cancer
     Dosage: FREQUENCY : DAILY;?
     Route: 048
     Dates: start: 20230112
  2. LUPRON DEPOT [Suspect]
     Active Substance: LEUPROLIDE ACETATE
  3. LUPRON DEPOT [Suspect]
     Active Substance: LEUPROLIDE ACETATE
     Indication: Prostate cancer
     Dosage: OTHER FREQUENCY : 3MONTHS;?
     Route: 042
  4. BELSOMRA [Concomitant]
     Active Substance: SUVOREXANT
  5. CIPROFLOXACIN [Concomitant]
     Active Substance: CIPROFLOXACIN
  6. DIMENHYDRINATE [Concomitant]
     Active Substance: DIMENHYDRINATE
  7. EX-LAX REGULAR STRENGTH STIMULANT LAXATIVE [Concomitant]
     Active Substance: SENNOSIDES
  8. EZETIMIBE [Concomitant]
     Active Substance: EZETIMIBE
  9. FUROSEMIDE [Concomitant]
     Active Substance: FUROSEMIDE
  10. GABAPENTIN [Concomitant]
     Active Substance: GABAPENTIN
  11. MELTATONIN [Concomitant]
  12. MILK OF MAGNESIA [Concomitant]
     Active Substance: MAGNESIUM HYDROXIDE
  13. MORPHINE [Concomitant]
     Active Substance: MORPHINE
  14. NORCO [Concomitant]
     Active Substance: ACETAMINOPHEN\HYDROCODONE BITARTRATE
  15. PANTOPRAZOLE [Concomitant]
     Active Substance: PANTOPRAZOLE
  16. PREDNISONE [Concomitant]
     Active Substance: PREDNISONE
  17. PREGABALIN [Concomitant]
     Active Substance: PREGABALIN
  18. CASEIN\DIETARY SUPPLEMENT\THEANINE [Concomitant]
     Active Substance: CASEIN\DIETARY SUPPLEMENT\THEANINE
  19. STOOL SOFTENER (DOCUSATE) [Concomitant]
     Active Substance: DOCUSATE
  20. TAMSULOSIN [Concomitant]
     Active Substance: TAMSULOSIN
  21. TRAMADOL [Concomitant]
     Active Substance: TRAMADOL
  22. VITAMIN B12 [Concomitant]
     Active Substance: CYANOCOBALAMIN
  23. VITAMIN D3 [Concomitant]
     Active Substance: CHOLECALCIFEROL
  24. VOLTAREN [Concomitant]
     Active Substance: DICLOFENAC SODIUM
  25. ZOLPIDEM [Concomitant]
     Active Substance: ZOLPIDEM TARTRATE

REACTIONS (7)
  - Syncope [None]
  - Arthralgia [None]
  - Neck pain [None]
  - Feeling cold [None]
  - Chills [None]
  - Urinary incontinence [None]
  - Blood pressure systolic increased [None]
